FAERS Safety Report 5423967-1 (Version None)
Quarter: 2007Q3

REPORT INFORMATION
  Report Type: 
  Country: None (occurrence: None)
  Receive Date: 20070727
  Receipt Date: 20060911
  Transmission Date: 20080115
  Serious: Yes (Death, Life-Threatening, Hospitalization)
  Sender: FDA-Public Use
  Company Number: THYM-11002

PATIENT
  Age: 51 Year
  Sex: Female
  Weight: 56.3 kg

DRUGS (6)
  1. THYMOGLOBULIN [Suspect]
     Indication: PROPHYLAXIS AGAINST TRANSPLANT REJECTION
     Dosage: 0.5 MG/KG QD IV
     Route: 042
     Dates: start: 20060618, end: 20060618
  2. THYMOGLOBULIN [Suspect]
     Indication: PROPHYLAXIS AGAINST TRANSPLANT REJECTION
     Dosage: 2.5 MG/KG QD IV
     Route: 042
     Dates: start: 20060619, end: 20060619
  3. THYMOGLOBULIN [Suspect]
     Indication: PROPHYLAXIS AGAINST TRANSPLANT REJECTION
     Dosage: 3 MG/KG QD IV
     Route: 042
     Dates: start: 20060620, end: 20060620
  4. TACROLIMUS [Concomitant]
  5. FLUDARABINE PHOSPHATE [Concomitant]
  6. BUSULFAN [Concomitant]

REACTIONS (18)
  - ASPERGILLOSIS [None]
  - CEREBRAL DISORDER [None]
  - CITROBACTER INFECTION [None]
  - CYTOMEGALOVIRUS INFECTION [None]
  - DIARRHOEA [None]
  - ENCEPHALOPATHY [None]
  - ENTEROCOCCAL INFECTION [None]
  - HAEMATOMA [None]
  - MENTAL STATUS CHANGES [None]
  - MUCOSAL INFLAMMATION [None]
  - MYOPATHY [None]
  - NAUSEA [None]
  - NEUTROPENIA [None]
  - PNEUMONITIS [None]
  - RENAL FAILURE ACUTE [None]
  - RESPIRATORY FAILURE [None]
  - REVERSIBLE POSTERIOR LEUKOENCEPHALOPATHY SYNDROME [None]
  - SUBDURAL HAEMORRHAGE [None]
